FAERS Safety Report 12111354 (Version 1)
Quarter: 2016Q1

REPORT INFORMATION
  Report Type: Spontaneous
  Country: US (occurrence: US)
  Receive Date: 20160224
  Receipt Date: 20160224
  Transmission Date: 20160526
  Serious: Yes (Disabling)
  Sender: FDA-Public Use
  Company Number: US-BECTON DICKINSON-2016BDN00038

PATIENT
  Age: 34 Year
  Sex: Female

DRUGS (1)
  1. CHLORHEXIDINE [Suspect]
     Active Substance: CHLORHEXIDINE
     Indication: ANTIBIOTIC PROPHYLAXIS
     Route: 061

REACTIONS (6)
  - Ototoxicity [Not Recovered/Not Resolved]
  - Accidental exposure to product [Recovered/Resolved with Sequelae]
  - Vertigo [Unknown]
  - Ear discomfort [Unknown]
  - Otorrhoea [Unknown]
  - Deafness neurosensory [Not Recovered/Not Resolved]
